FAERS Safety Report 5832898-4 (Version None)
Quarter: 2008Q3

REPORT INFORMATION
  Report Type: 
  Country: None (occurrence: None)
  Receive Date: 20080804
  Receipt Date: 20080729
  Transmission Date: 20090109
  Serious: Yes (Other)
  Sender: FDA-Public Use
  Company Number: GB-BOEHRINGER INGELHEIM GMBH, GERMANY-2008-UK-01407UK

PATIENT
  Age: 63 Year
  Sex: Female
  Weight: 65 kg

DRUGS (2)
  1. PRAMIPEXOLE DIHYDROCHLORIDE [Suspect]
     Indication: PARKINSON'S DISEASE
     Dosage: 1 DF 3 TIMES PER DAY
     Route: 048
  2. SINEMET [Concomitant]
     Dosage: 62.5 MG 3 TIMES PER DAY
     Route: 048

REACTIONS (2)
  - CONFUSIONAL STATE [None]
  - MEDICATION ERROR [None]
